FAERS Safety Report 16342324 (Version 1)
Quarter: 2019Q2

REPORT INFORMATION
  Report Type: Spontaneous
  Country: US (occurrence: US)
  Receive Date: 20190416
  Receipt Date: 20190416
  Transmission Date: 20190711
  Serious: Yes (Other)
  Sender: FDA-Public Use
  Company Number: None

PATIENT
  Age: 80 Year
  Sex: Female

DRUGS (15)
  1. FOLIC ACID. [Concomitant]
     Active Substance: FOLIC ACID
  2. ARAVA [Concomitant]
     Active Substance: LEFLUNOMIDE
  3. SILDENAFIL. [Concomitant]
     Active Substance: SILDENAFIL
  4. LEVOTHIROID [Concomitant]
  5. NPH INSULIN [Concomitant]
     Active Substance: INSULIN BEEF
  6. WARFARIN [Concomitant]
     Active Substance: WARFARIN
  7. CALCIUM CARVOBNATE-VIT D3 [Concomitant]
  8. TORSEMIDE. [Concomitant]
     Active Substance: TORSEMIDE
  9. LIPITOR [Concomitant]
     Active Substance: ATORVASTATIN CALCIUM
  10. FERROUS SULFATE. [Concomitant]
     Active Substance: FERROUS SULFATE
  11. SPIRONOLACTONE. [Concomitant]
     Active Substance: SPIRONOLACTONE
  12. OPSUMIT [Suspect]
     Active Substance: MACITENTAN
     Indication: PULMONARY HYPERTENSION
     Route: 048
     Dates: start: 201810
  13. DIGOXIN. [Concomitant]
     Active Substance: DIGOXIN
  14. LASIX [Concomitant]
     Active Substance: FUROSEMIDE
  15. FOSAMAX [Concomitant]
     Active Substance: ALENDRONATE SODIUM

REACTIONS (2)
  - Cellulitis [None]
  - Animal bite [None]

NARRATIVE: CASE EVENT DATE: 20190414
